FAERS Safety Report 8083458-9 (Version None)
Quarter: 2012Q1

REPORT INFORMATION
  Report Type: 
  Country: None (occurrence: None)
  Receive Date: 20120127
  Receipt Date: 20110126
  Transmission Date: 20120608
  Serious: No
  Sender: FDA-Public Use
  Company Number: US-ABBOTT-11P-163-0700768-00

PATIENT
  Sex: Female

DRUGS (4)
  1. GLUCOPHAGE [Concomitant]
     Indication: GESTATIONAL DIABETES
  2. ZANTAC [Concomitant]
     Indication: DYSPEPSIA
     Route: 048
  3. HUMIRA [Suspect]
     Indication: CROHN'S DISEASE
     Dates: start: 20090601
  4. MULTI-VITAMINS [Concomitant]
     Indication: PREGNANCY

REACTIONS (3)
  - MENSTRUATION IRREGULAR [None]
  - DYSPEPSIA [None]
  - GESTATIONAL DIABETES [None]
